FAERS Safety Report 23073164 (Version 1)
Quarter: 2023Q4

REPORT INFORMATION
  Report Type: Spontaneous
  Country: US (occurrence: US)
  Receive Date: 20231017
  Receipt Date: 20231017
  Transmission Date: 20240110
  Serious: Yes (Life-Threatening, Hospitalization)
  Sender: FDA-Public Use
  Company Number: US-STERISCIENCE B.V.-2023-ST-001972

PATIENT
  Age: 48 Year
  Sex: Male

DRUGS (1)
  1. SODIUM BICARBONATE [Suspect]
     Active Substance: SODIUM BICARBONATE
     Indication: Acute respiratory distress syndrome
     Dosage: UNK,EVERY 6 HOURS FOR THE FIRST 24 HOURS; NEBULISED SODIUM-BICARBONATE THERAPY
     Route: 065

REACTIONS (1)
  - Drug ineffective for unapproved indication [Unknown]
